FAERS Safety Report 13050616 (Version 1)
Quarter: 2016Q4

REPORT INFORMATION
  Report Type: Spontaneous
  Country: US (occurrence: US)
  Receive Date: 20161221
  Receipt Date: 20161221
  Transmission Date: 20170207
  Serious: No
  Sender: FDA-Public Use
  Company Number: US-NOVOPROD-505182

PATIENT
  Age: 43 Year
  Sex: Male

DRUGS (1)
  1. LEVEMIR [Suspect]
     Active Substance: INSULIN DETEMIR
     Indication: PRODUCT USED FOR UNKNOWN INDICATION
     Dosage: 75 U, QD
     Route: 058
     Dates: start: 201603, end: 201604

REACTIONS (2)
  - Joint swelling [Recovered/Resolved]
  - Rash [Recovered/Resolved]
